FAERS Safety Report 5021988-4 (Version None)
Quarter: 2006Q2

REPORT INFORMATION
  Report Type: 
  Country: None (occurrence: None)
  Receive Date: 20060605
  Receipt Date: 20060526
  Transmission Date: 20061013
  Serious: Yes (Death, Life-Threatening, Hospitalization, Disabling, Other)
  Sender: FDA-Public Use
  Company Number: US-2006-010534

PATIENT
  Sex: 0

DRUGS (14)
  1. CAMPATH [Suspect]
     Indication: CHRONIC LYMPHOCYTIC LEUKAEMIA
     Dosage: D1-5 Q28 DAYS, SUBCUTANEOUS
     Route: 058
     Dates: start: 20060123, end: 20060331
  2. FLUDARA [Suspect]
     Indication: CHRONIC LYMPHOCYTIC LEUKAEMIA
     Dosage: D1-5 Q28 DAYS, INTRAVENOUS
     Route: 042
     Dates: start: 20060123, end: 20060331
  3. SEPTRA DS [Concomitant]
  4. FAMVIR [Concomitant]
  5. NEUPOGEN [Concomitant]
  6. MOTRIN [Concomitant]
  7. PROCRIT [Concomitant]
  8. KYTRIL [Concomitant]
  9. BENADRYL ^^PFIZER WARNER-LAMBERT^ (DIPHENHYDRAMINE HYDROCHLORIDE) [Concomitant]
  10. TYLENOL (CAPLET) [Concomitant]
  11. LIPITOR /NET/ (ATORVASTATIN CALCIUM) [Concomitant]
  12. ALLOPURINOL [Concomitant]
  13. LEVAQUIN [Concomitant]
  14. DECADRON /CAN/ [Concomitant]

REACTIONS (16)
  - BONE PAIN [None]
  - DECREASED APPETITE [None]
  - DIZZINESS [None]
  - FATIGUE [None]
  - HEADACHE [None]
  - HYPOTENSION [None]
  - INSOMNIA [None]
  - MUSCULOSKELETAL STIFFNESS [None]
  - MYELITIS [None]
  - NECK PAIN [None]
  - NEUROPATHY PERIPHERAL [None]
  - NEUROTOXICITY [None]
  - PETECHIAE [None]
  - PYREXIA [None]
  - THROMBOCYTOPENIA [None]
  - URINARY INCONTINENCE [None]
